FAERS Safety Report 7732820-X (Version None)
Quarter: 2011Q3

REPORT INFORMATION
  Report Type: 
  Country: None (occurrence: None)
  Receive Date: 20110901
  Receipt Date: 20110818
  Transmission Date: 20111222
  Serious: Yes (Other)
  Sender: FDA-Public Use
  Company Number: AUR-APL-2011-04702

PATIENT
  Age: 28 Year
  Sex: Male
  Weight: 87 kg

DRUGS (8)
  1. NICOTINE [Concomitant]
  2. NICOTINELL (NICOTINE) [Concomitant]
  3. QUINODERM (POTASSIUM HYDROXYQUINOLINE SULFATE) [Concomitant]
  4. CITALOPRAM HYDROBROMIDE [Suspect]
     Dates: start: 20110802
  5. DERMOL (CLOBETASOL PROPIONATE) [Concomitant]
  6. VITAMIN B SUBSTANCES (VITAMIN B COMPOUND /04308601/) [Concomitant]
  7. CHLORDIAZEPOXIDE [Concomitant]
  8. THIAMINE HCL [Concomitant]

REACTIONS (1)
  - ANGIOEDEMA [None]
